FAERS Safety Report 18506304 (Version 2)
Quarter: 2020Q4

REPORT INFORMATION
  Report Type: Spontaneous
  Country: GB (occurrence: GB)
  Receive Date: 20201116
  Receipt Date: 20201217
  Transmission Date: 20210114
  Serious: Yes (Death, Other)
  Sender: FDA-Public Use
  Company Number: GB-PFIZER INC-2020451289

PATIENT
  Age: 55 Year
  Weight: 72.6 kg

DRUGS (3)
  1. BRAFTOVI [Suspect]
     Active Substance: ENCORAFENIB
     Indication: COLORECTAL CANCER METASTATIC
     Dosage: 300 MG/DAY
     Route: 065
     Dates: start: 20200713, end: 20200821
  2. CETUXIMAB. [Suspect]
     Active Substance: CETUXIMAB
     Indication: COLORECTAL CANCER METASTATIC
     Dosage: UNK
     Route: 065
     Dates: start: 20200713, end: 20200821
  3. HYDROMORPHONE [Concomitant]
     Active Substance: HYDROMORPHONE
     Dosage: 40 MG, 24H PUMP
     Route: 058

REACTIONS (2)
  - Neoplasm progression [Fatal]
  - Small intestinal obstruction [Unknown]

NARRATIVE: CASE EVENT DATE: 20200818
